FAERS Safety Report 5371786-7 (Version None)
Quarter: 2007Q2

REPORT INFORMATION
  Report Type: 
  Country: None (occurrence: None)
  Receive Date: 20070625
  Receipt Date: 20070611
  Transmission Date: 20071010
  Serious: Yes (Disabling)
  Sender: FDA-Public Use
  Company Number: 2007AL001011

PATIENT
  Age: 25 Year
  Sex: Male

DRUGS (2)
  1. ACYCLOVIR [Suspect]
     Indication: POST HERPETIC NEURALGIA
     Dosage: 800 MG;BID;PO
     Route: 048
     Dates: start: 20061113, end: 20061207
  2. AMITRIPTYLINE HCL [Concomitant]

REACTIONS (1)
  - DEAFNESS NEUROSENSORY [None]
